FAERS Safety Report 24190529 (Version 1)
Quarter: 2024Q3

REPORT INFORMATION
  Report Type: Spontaneous
  Country: CA (occurrence: CA)
  Receive Date: 20240808
  Receipt Date: 20240808
  Transmission Date: 20241016
  Serious: Yes (Other)
  Sender: SANOFI AVENTIS
  Company Number: CA-SANOFI-02165435

PATIENT
  Sex: Female

DRUGS (1)
  1. LOVENOX [Suspect]
     Active Substance: ENOXAPARIN SODIUM
     Dosage: UNK

REACTIONS (16)
  - Loss of consciousness [Unknown]
  - Hemiparesis [Unknown]
  - Dysphemia [Unknown]
  - Confusional state [Unknown]
  - Coordination abnormal [Unknown]
  - Vision blurred [Unknown]
  - Hyperhidrosis [Unknown]
  - Tremor [Unknown]
  - Fatigue [Unknown]
  - Contusion [Unknown]
  - Speech disorder [Unknown]
  - Gait disturbance [Unknown]
  - Dyskinesia [Unknown]
  - Blood urine [Unknown]
  - Injection site pain [Unknown]
  - Headache [Unknown]
